FAERS Safety Report 8465610-3 (Version None)
Quarter: 2012Q2

REPORT INFORMATION
  Report Type: 
  Country: None (occurrence: None)
  Receive Date: 20120621
  Receipt Date: 20120621
  Transmission Date: 20120825
  Serious: No
  Sender: FDA-Public Use
  Company Number: None

PATIENT
  Age: 41 Year
  Sex: Female

DRUGS (1)
  1. GAMMAGARD [Suspect]
     Indication: GUILLAIN-BARRE SYNDROME
     Dosage: 25GM FIVE DOSES IV NO YEAR FOR THERAPY DATES
     Route: 042
     Dates: start: 20120313, end: 20120316

REACTIONS (2)
  - NEUTROPENIA [None]
  - LEUKOPENIA [None]
